FAERS Safety Report 19258034 (Version 1)
Quarter: 2021Q2

REPORT INFORMATION
  Report Type: Other
  Country: DE (occurrence: DE)
  Receive Date: 20210514
  Receipt Date: 20210514
  Transmission Date: 20210717
  Serious: Yes (Hospitalization, Other)
  Sender: FDA-Public Use
  Company Number: DE-ROCHE-2830914

PATIENT
  Sex: Male

DRUGS (2)
  1. RITUXIMAB. [Suspect]
     Active Substance: RITUXIMAB
     Indication: CASTLEMAN^S DISEASE
     Dosage: FIRST?LINE THERAPY
     Route: 065
  2. TOCILIZUMAB. [Suspect]
     Active Substance: TOCILIZUMAB
     Indication: CASTLEMAN^S DISEASE
     Dosage: FIRST?LINE TREATMENT
     Route: 065

REACTIONS (3)
  - Off label use [Unknown]
  - Cytokine release syndrome [Unknown]
  - Castleman^s disease [Unknown]

NARRATIVE: CASE EVENT DATE: 2019
